FAERS Safety Report 17167318 (Version 1)
Quarter: 2019Q4

REPORT INFORMATION
  Report Type: Spontaneous
  Country: DE (occurrence: DE)
  Receive Date: 20191217
  Receipt Date: 20191217
  Transmission Date: 20200122
  Serious: Yes (Hospitalization, Other)
  Sender: FDA-Public Use
  Company Number: DE-BAXTER-2019BAX025018

PATIENT
  Age: 27 Year
  Sex: Male

DRUGS (7)
  1. KEPPRA [Concomitant]
     Active Substance: LEVETIRACETAM
     Indication: PRODUCT USED FOR UNKNOWN INDICATION
     Route: 065
  2. TAZOBACTAM [Concomitant]
     Active Substance: TAZOBACTAM
     Indication: PRODUCT USED FOR UNKNOWN INDICATION
     Dosage: UNK
     Route: 065
     Dates: start: 20190505
  3. FLUDARABINE [Suspect]
     Active Substance: FLUDARABINE PHOSPHATE
     Indication: BONE MARROW CONDITIONING REGIMEN
     Dosage: 30 MG/M2, QD
     Route: 065
     Dates: start: 20190425, end: 20190427
  4. METHYLPREDNISOLONE. [Concomitant]
     Active Substance: METHYLPREDNISOLONE
     Indication: PRODUCT USED FOR UNKNOWN INDICATION
     Dosage: 1G, QD
     Route: 042
     Dates: start: 20190505
  5. TOCILIZUMAB. [Concomitant]
     Active Substance: TOCILIZUMAB
     Indication: PRODUCT USED FOR UNKNOWN INDICATION
     Dosage: 8 MG/KG, UNK
     Route: 042
     Dates: start: 20190501, end: 20190502
  6. ENDOXAN 1G [Suspect]
     Active Substance: CYCLOPHOSPHAMIDE
     Indication: BONE MARROW CONDITIONING REGIMEN
     Dosage: 500 MG/M2, QD
     Route: 065
     Dates: start: 20190425, end: 20190427
  7. NEURALGIN [Concomitant]
     Indication: PRODUCT USED FOR UNKNOWN INDICATION
     Dosage: UNK
     Route: 048
     Dates: start: 20190505

REACTIONS (4)
  - Neurotoxicity [Recovered/Resolved]
  - Bone marrow failure [Recovered/Resolved]
  - Cytokine release syndrome [Recovered/Resolved]
  - Cytokine storm [Recovered/Resolved]

NARRATIVE: CASE EVENT DATE: 20190501
